FAERS Safety Report 23807747 (Version 1)
Quarter: 2024Q2

REPORT INFORMATION
  Report Type: Spontaneous
  Country: ES (occurrence: ES)
  Receive Date: 20240502
  Receipt Date: 20240502
  Transmission Date: 20240716
  Serious: Yes (Other)
  Sender: FDA-Public Use
  Company Number: ES-JNJFOC-20240480748

PATIENT

DRUGS (3)
  1. SPRAVATO [Suspect]
     Active Substance: ESKETAMINE
     Indication: Depression
  2. SPRAVATO [Suspect]
     Active Substance: ESKETAMINE
     Dosage: UNTIL WEEK 8
  3. SPRAVATO [Suspect]
     Active Substance: ESKETAMINE
     Dosage: WEEKLY OR EVERY TWO WEEKS UNTIL WEEK 16

REACTIONS (1)
  - Suicidal ideation [Unknown]
